FAERS Safety Report 12287121 (Version 2)
Quarter: 2016Q3

REPORT INFORMATION
  Report Type: Report from Study
  Country: BR (occurrence: BR)
  Receive Date: 20160420
  Receipt Date: 20160808
  Transmission Date: 20161109
  Serious: Yes (Other)
  Sender: FDA-Public Use
  Company Number: BR-JNJFOC-20160415468

PATIENT
  Age: 54 Year
  Sex: Male
  Weight: 85 kg

DRUGS (11)
  1. SPIRONOLACTONE. [Concomitant]
     Active Substance: SPIRONOLACTONE
     Route: 065
  2. GLIMEPIRIDE. [Concomitant]
     Active Substance: GLIMEPIRIDE
     Route: 065
  3. REMICADE [Suspect]
     Active Substance: INFLIXIMAB
     Indication: PSORIATIC ARTHROPATHY
     Route: 042
     Dates: start: 2010, end: 201410
  4. REMICADE [Suspect]
     Active Substance: INFLIXIMAB
     Indication: PSORIATIC ARTHROPATHY
     Route: 042
     Dates: start: 201607
  5. LOSARTAN. [Concomitant]
     Active Substance: LOSARTAN
     Route: 065
  6. ACETYLSALICYLIC ACID [Concomitant]
     Active Substance: ASPIRIN
     Route: 065
  7. SELOZOK [Concomitant]
     Active Substance: METOPROLOL SUCCINATE
     Route: 065
  8. ROSUVASTATIN. [Concomitant]
     Active Substance: ROSUVASTATIN
     Route: 065
  9. AZATHIOPRINE. [Concomitant]
     Active Substance: AZATHIOPRINE
     Route: 065
  10. METFORMIN HYDROCHLORIDE. [Concomitant]
     Active Substance: METFORMIN HYDROCHLORIDE
     Route: 065
  11. GALVUS [Concomitant]
     Active Substance: VILDAGLIPTIN
     Route: 065

REACTIONS (5)
  - Drug prescribing error [Unknown]
  - Cardiac disorder [Unknown]
  - Cardiac operation [Recovered/Resolved]
  - Psoriatic arthropathy [Unknown]
  - Off label use [Unknown]

NARRATIVE: CASE EVENT DATE: 2010
